FAERS Safety Report 9385774 (Version 1)
Quarter: 2013Q3

REPORT INFORMATION
  Report Type: Spontaneous
  Country: US (occurrence: US)
  Receive Date: 20130705
  Receipt Date: 20130705
  Transmission Date: 20140515
  Serious: Yes (Other)
  Sender: FDA-Public Use
  Company Number: US-BAYER-2013-081728

PATIENT
  Age: 22 Year
  Sex: Female

DRUGS (1)
  1. OCELLA [Suspect]
     Dosage: UNK

REACTIONS (2)
  - Back pain [None]
  - Cholecystectomy [None]
